FAERS Safety Report 12299523 (Version 4)
Quarter: 2016Q2

REPORT INFORMATION
  Report Type: Spontaneous
  Country: US (occurrence: US)
  Receive Date: 20160425
  Receipt Date: 20160601
  Transmission Date: 20160815
  Serious: No
  Sender: FDA-Public Use
  Company Number: US-PFIZER INC-2016153437

PATIENT
  Age: 69 Year
  Sex: Male

DRUGS (3)
  1. SUTENT [Suspect]
     Active Substance: SUNITINIB MALATE
     Indication: GASTROINTESTINAL STROMAL TUMOUR
     Dosage: 37.5 MG, DAILY
     Dates: start: 20160303
  2. COZAAR [Concomitant]
     Active Substance: LOSARTAN POTASSIUM
     Dosage: UNK
  3. IMODIUM [Concomitant]
     Active Substance: LOPERAMIDE HYDROCHLORIDE
     Dosage: UNK

REACTIONS (4)
  - Glossodynia [Recovering/Resolving]
  - Diarrhoea [Recovering/Resolving]
  - Blood potassium increased [Unknown]
  - Oral pain [Recovering/Resolving]
